FAERS Safety Report 6711594-5 (Version None)
Quarter: 2010Q2

REPORT INFORMATION
  Report Type: 
  Country: None (occurrence: None)
  Receive Date: 20100505
  Receipt Date: 20100427
  Transmission Date: 20101027
  Serious: Yes (Other)
  Sender: FDA-Public Use
  Company Number: PHHY2010BR07743

PATIENT
  Age: 86 Year
  Sex: Female
  Weight: 50 kg

DRUGS (15)
  1. FORASEQ [Suspect]
     Indication: EMPHYSEMA
     Dosage: 12/400 MCG, 1 DF, BID
  2. FORASEQ [Suspect]
     Indication: BRONCHITIS
  3. PRIMIDONE [Concomitant]
     Indication: TREMOR
     Dosage: 100 MG, QD
     Route: 048
  4. OMEPRAZOLE [Concomitant]
     Indication: DYSPEPSIA
     Dosage: 20 MG, QD
     Route: 048
  5. DOMICIX [Concomitant]
     Indication: BRONCHITIS
     Dosage: 300 MG, ONCE OR TWICE A DAY
     Route: 048
  6. RIVOTRIL [Concomitant]
     Dosage: 2 MG, QD
     Route: 048
  7. SIMVASTATIN [Concomitant]
     Indication: BLOOD CHOLESTEROL
     Dosage: 20 MG, QD
     Route: 048
  8. MACRODANTIN [Concomitant]
     Indication: URINARY TRACT INFECTION
     Dosage: 100 MG, QD
     Route: 048
  9. METFORMIN [Concomitant]
     Indication: DIABETES MELLITUS
     Dosage: UNK
  10. METFORMIN [Concomitant]
     Indication: BLOOD GLUCOSE INCREASED
  11. DUOVENT [Concomitant]
     Indication: BRONCHITIS
     Dosage: UNK
  12. BEROTEC [Concomitant]
     Indication: BRONCHITIS
     Dosage: UNK
  13. FENYTOIN [Concomitant]
     Indication: CONVULSION
     Dosage: 100 MG, QD
  14. PAROXETINE HCL [Concomitant]
     Indication: ANXIETY
     Dosage: 30 MG, QD
  15. PAROXETINE HCL [Concomitant]
     Indication: AGGRESSION

REACTIONS (1)
  - DEMENTIA ALZHEIMER'S TYPE [None]
